FAERS Safety Report 8387274-X (Version None)
Quarter: 2012Q2

REPORT INFORMATION
  Report Type: 
  Country: None (occurrence: None)
  Receive Date: 20120525
  Receipt Date: 20120516
  Transmission Date: 20120825
  Serious: Yes (Hospitalization, Other)
  Sender: FDA-Public Use
  Company Number: US-ASTRAZENECA-2011SE58642

PATIENT
  Age: 62 Year
  Sex: Female
  Weight: 29.9 kg

DRUGS (18)
  1. SEROQUEL [Suspect]
     Dosage: ONCE
     Route: 048
  2. SEROQUEL [Suspect]
     Route: 048
     Dates: start: 20071107
  3. SEROQUEL [Suspect]
     Route: 048
  4. SEROQUEL [Suspect]
     Route: 048
     Dates: start: 20071107
  5. MARTEZATINE [Concomitant]
  6. SEROQUEL [Suspect]
     Route: 048
  7. NORVASC [Concomitant]
  8. BLOOD PRESSURE MEDICATION [Concomitant]
     Indication: HYPERTENSION
  9. SEROQUEL [Suspect]
     Route: 048
     Dates: start: 20071107
  10. ATENOLOL [Concomitant]
  11. LORAZEPAM [Concomitant]
  12. SPIRONOLACTONE [Concomitant]
  13. DRAMAMINE [Concomitant]
     Indication: NAUSEA
  14. SEROQUEL [Suspect]
     Indication: BIPOLAR DISORDER
     Dosage: ONCE
     Route: 048
  15. SEROQUEL [Suspect]
     Indication: SLEEP DISORDER
     Dosage: ONCE
     Route: 048
  16. SEROQUEL [Suspect]
     Route: 048
  17. LEVOXYL [Concomitant]
  18. POTASSIUM CHLORIDE [Concomitant]
     Dosage: ONCE A MONTH

REACTIONS (34)
  - NEOPLASM [None]
  - WEIGHT DECREASED [None]
  - HANGOVER [None]
  - DYSPHAGIA [None]
  - ABASIA [None]
  - INSOMNIA [None]
  - DEMENTIA [None]
  - FEELING DRUNK [None]
  - DEPRESSED MOOD [None]
  - THERAPEUTIC RESPONSE UNEXPECTED [None]
  - MULTIPLE SCLEROSIS [None]
  - FEELING ABNORMAL [None]
  - PAIN [None]
  - ABDOMINAL PAIN [None]
  - RENAL FAILURE CHRONIC [None]
  - LUNG DISORDER [None]
  - INTERVERTEBRAL DISC PROTRUSION [None]
  - NERVOUSNESS [None]
  - NEOPLASM MALIGNANT [None]
  - RENAL CANCER [None]
  - ANXIETY DISORDER [None]
  - RESTLESSNESS [None]
  - CEREBROVASCULAR ACCIDENT [None]
  - VERTEBRAL COLUMN MASS [None]
  - SOMNOLENCE [None]
  - HERNIA [None]
  - NAUSEA [None]
  - THYROID DISORDER [None]
  - ACTIVITIES OF DAILY LIVING IMPAIRED [None]
  - INTENTIONAL DRUG MISUSE [None]
  - OFF LABEL USE [None]
  - SUICIDAL IDEATION [None]
  - ARTHRITIS [None]
  - DIZZINESS [None]
